FAERS Safety Report 24801974 (Version 3)
Quarter: 2025Q1

REPORT INFORMATION
  Report Type: Spontaneous
  Country: JP (occurrence: JP)
  Receive Date: 20250102
  Receipt Date: 20250325
  Transmission Date: 20250408
  Serious: Yes (Death, Hospitalization)
  Sender: ASTELLAS
  Company Number: JP-ASTELLAS-2024-AER-013446

PATIENT
  Age: 77 Year
  Sex: Male
  Weight: 56 kg

DRUGS (20)
  1. PADCEV [Suspect]
     Active Substance: ENFORTUMAB VEDOTIN-EJFV
     Indication: Transitional cell cancer of renal pelvis and ureter metastatic
     Route: 042
     Dates: start: 20241001, end: 20241023
  2. PADCEV [Suspect]
     Active Substance: ENFORTUMAB VEDOTIN-EJFV
     Route: 042
     Dates: start: 20241024, end: 20241031
  3. PADCEV [Suspect]
     Active Substance: ENFORTUMAB VEDOTIN-EJFV
     Route: 042
  4. KEYTRUDA [Suspect]
     Active Substance: PEMBROLIZUMAB
     Indication: Transitional cell cancer of renal pelvis and ureter metastatic
     Route: 042
     Dates: start: 20241001, end: 20241024
  5. PREDONINE [Suspect]
     Active Substance: PREDNISOLONE
     Indication: Erythema
     Route: 048
     Dates: start: 20241018, end: 20241023
  6. PREDONINE [Suspect]
     Active Substance: PREDNISOLONE
     Indication: Rash
     Route: 048
     Dates: start: 20241111, end: 20241121
  7. PREDONINE [Suspect]
     Active Substance: PREDNISOLONE
     Route: 048
     Dates: start: 20241122, end: 20241122
  8. PREDONINE [Suspect]
     Active Substance: PREDNISOLONE
     Route: 048
     Dates: start: 20241028, end: 20241110
  9. CEFTRIAXONE [Suspect]
     Active Substance: CEFTRIAXONE
     Indication: Clostridium colitis
     Route: 042
     Dates: start: 20241015, end: 20241022
  10. CEFTRIAXONE [Suspect]
     Active Substance: CEFTRIAXONE
     Indication: Rash
     Route: 042
     Dates: start: 20241209, end: 202412
  11. CEFTRIAXONE [Suspect]
     Active Substance: CEFTRIAXONE
     Indication: Pyrexia
     Route: 042
     Dates: start: 20241121, end: 20241202
  12. CEFTRIAXONE [Suspect]
     Active Substance: CEFTRIAXONE
     Indication: Interstitial lung disease
  13. CEFTRIAXONE [Suspect]
     Active Substance: CEFTRIAXONE
     Indication: Pneumocystis jirovecii pneumonia
  14. GLYCOSAMINOGLYCANS [Concomitant]
     Active Substance: GLYCOSAMINOGLYCANS
     Indication: Product used for unknown indication
     Route: 061
     Dates: start: 20241001
  15. MYSER [Concomitant]
     Indication: Erythema
     Route: 061
     Dates: start: 20241015
  16. SOLU-MEDROL [Concomitant]
     Active Substance: METHYLPREDNISOLONE SODIUM SUCCINATE
     Indication: Pharyngeal inflammation
     Route: 065
     Dates: start: 20241123, end: 202411
  17. SOLU-MEDROL [Concomitant]
     Active Substance: METHYLPREDNISOLONE SODIUM SUCCINATE
     Route: 065
     Dates: start: 20241128
  18. SOLU-MEDROL [Concomitant]
     Active Substance: METHYLPREDNISOLONE SODIUM SUCCINATE
     Route: 065
     Dates: start: 20241224, end: 202412
  19. SULFAMETHOXAZOLE\TRIMETHOPRIM [Concomitant]
     Active Substance: SULFAMETHOXAZOLE\TRIMETHOPRIM
     Indication: Product used for unknown indication
     Route: 065
     Dates: start: 20241118, end: 20241123
  20. METRONIDAZOLE [Concomitant]
     Active Substance: METRONIDAZOLE
     Indication: Clostridium colitis
     Route: 065
     Dates: start: 20241219, end: 202412

REACTIONS (7)
  - Pneumocystis jirovecii pneumonia [Fatal]
  - Interstitial lung disease [Fatal]
  - Rash [Recovering/Resolving]
  - Clostridium colitis [Unknown]
  - White blood cell count decreased [Recovered/Resolved]
  - Erythema [Recovering/Resolving]
  - C-reactive protein increased [Not Recovered/Not Resolved]

NARRATIVE: CASE EVENT DATE: 20241001
